FAERS Safety Report 7000594 (Version 3)
Quarter: 2012Q4

REPORT INFORMATION
  Report Type: 
  Country: GB (occurrence: US)
  Receive Date: 20090522
  Receipt Date: 20121212
  Transmission Date: 20130627
  Serious: Yes (Hospitalization, Other)
  Sender: FDA-Public Use
  Company Number: US-BAYER-200921043NA

PATIENT
  Age: 57 Year
  Sex: Female
  Weight: 79.3 kg

DRUGS (3)
  1. SORAFENIB (RAF KINASE INHIBITOR) [Suspect]
     Indication: PANCREATIC CARCINOMA METASTATIC
     Route: 048
     Dates: start: 20090304, end: 20090514
  2. OXALIPLATIN [Suspect]
     Indication: PANCREATIC CARCINOMA METASTATIC
     Route: 042
     Dates: start: 20090304, end: 20090504
  3. CAPECITABINE [Suspect]
     Indication: PANCREATIC CARCINOMA METASTATIC
     Dosage: 2250 mg/m2, 1 in 2 weeks, CAPECITABINE WAS ADMINISTERED EVERY 8 HOURS TIMES 6 AFTER EACH
     Route: 048
     Dates: start: 20090504, end: 20090506

REACTIONS (2)
  - Pulmonary embolism [Unknown]
  - Diarrhoea [Unknown]
